FAERS Safety Report 6130623-3 (Version None)
Quarter: 2009Q1

REPORT INFORMATION
  Report Type: 
  Country: None (occurrence: None)
  Receive Date: 20090323
  Receipt Date: 20090308
  Transmission Date: 20090719
  Serious: Yes (Other)
  Sender: FDA-Public Use
  Company Number: 2007S1006601

PATIENT
  Age: 62 Year
  Sex: Male
  Weight: 78.9259 kg

DRUGS (7)
  1. SODIUM PHOSPHATES [Suspect]
     Indication: COLONOSCOPY
     Dosage: 90 ML; TOTAL; PO
     Route: 048
     Dates: start: 20041213
  2. PENTASA [Concomitant]
  3. LISINOPRIL [Concomitant]
  4. METFORMIN [Concomitant]
  5. LIPITOR [Concomitant]
  6. HYDROCHLOROTHIAZIDE [Concomitant]
  7. ASPIRIN [Concomitant]

REACTIONS (5)
  - DRUG TOXICITY [None]
  - HYPERPHOSPHATAEMIA [None]
  - NEPHROCALCINOSIS [None]
  - RENAL FAILURE [None]
  - RENAL TUBULAR NECROSIS [None]
